FAERS Safety Report 6517406-7 (Version None)
Quarter: 2009Q4

REPORT INFORMATION
  Report Type: 
  Country: None (occurrence: None)
  Receive Date: 20091224
  Receipt Date: 20091216
  Transmission Date: 20100525
  Serious: Yes (Other)
  Sender: FDA-Public Use
  Company Number: FR-RANBAXY-2009RR-29875

PATIENT
  Age: 28 Year
  Sex: Female

DRUGS (4)
  1. TOPIRAMATE [Suspect]
     Indication: EPILEPSY
     Dosage: 150 MG, QD
  2. TOPIRAMATE [Suspect]
     Dosage: 200 MG, QD
  3. ALCOHOL [Concomitant]
  4. LEVETIRACETAM [Concomitant]
     Indication: EPILEPSY

REACTIONS (1)
  - SWEAT DISCOLOURATION [None]
